FAERS Safety Report 8981368 (Version 2)
Quarter: 2013Q1

REPORT INFORMATION
  Report Type: Spontaneous
  Country: US (occurrence: US)
  Receive Date: 20121221
  Receipt Date: 20130103
  Transmission Date: 20140127
  Serious: No
  Sender: FDA-Public Use
  Company Number: US-PFIZER INC-2012304834

PATIENT
  Age: 75 Year
  Sex: Female
  Weight: 46.71 kg

DRUGS (7)
  1. PROTONIX [Suspect]
     Indication: HIATUS HERNIA
     Dosage: UNK, 2X/DAY
     Dates: start: 2003
  2. PROTONIX [Suspect]
     Indication: GASTROOESOPHAGEAL REFLUX DISEASE
     Dosage: 80 MG, (40MG 2 A DAY)
  3. FLEXERIL [Suspect]
     Dosage: UNK
  4. ULTRAM [Concomitant]
     Indication: PAIN
     Dosage: UNK, AS NEEDED
  5. KETOROLAC [Concomitant]
     Indication: INFLAMMATION
     Dosage: 400 MG, 2X/DAY
  6. LODINE [Concomitant]
     Indication: INFLAMMATION
  7. ETODOLAC [Concomitant]
     Indication: PAIN
     Dosage: 400 MG, UNK

REACTIONS (6)
  - Diarrhoea [Recovering/Resolving]
  - Myalgia [Unknown]
  - Scoliosis [Unknown]
  - Limb discomfort [Unknown]
  - Limb discomfort [Unknown]
  - Neuropathy peripheral [Unknown]
